FAERS Safety Report 6153687-X (Version None)
Quarter: 2009Q2

REPORT INFORMATION
  Report Type: 
  Country: None (occurrence: None)
  Receive Date: 20090413
  Receipt Date: 20090403
  Transmission Date: 20091009
  Serious: Yes (Other)
  Sender: FDA-Public Use
  Company Number: US-JNJCH-2009009408

PATIENT
  Age: 67 Year
  Sex: Female
  Weight: 46.3 kg

DRUGS (1)
  1. BENADRYL ALLERGY KAPGELS [Suspect]
     Indication: HYPERSENSITIVITY
     Dosage: TEXT:1 KAPGEL ONCE
     Route: 048

REACTIONS (2)
  - DYSPNOEA [None]
  - ERYTHEMA [None]
